FAERS Safety Report 6380416-7 (Version None)
Quarter: 2009Q3

REPORT INFORMATION
  Report Type: 
  Country: None (occurrence: None)
  Receive Date: 20090929
  Receipt Date: 20090916
  Transmission Date: 20100115
  Serious: Yes (Other)
  Sender: FDA-Public Use
  Company Number: PHHY2009CA40035

PATIENT
  Sex: Male

DRUGS (11)
  1. DIOVAN [Suspect]
     Dosage: 1 TABLET (80 MG) A DAY
     Route: 048
  2. SIMVASTATIN [Concomitant]
  3. VENLAFAXINE [Concomitant]
  4. CLONAZEPAM [Concomitant]
  5. PIOGLITAZONE [Concomitant]
  6. QUETIAPINE FUMARATE [Concomitant]
  7. HYDROCHLOROTHIAZIDE [Concomitant]
  8. FLOMAX [Concomitant]
  9. GLUCONORM [Concomitant]
  10. METFORMIN HCL [Concomitant]
  11. APO-CYPROPERON [Concomitant]

REACTIONS (13)
  - COLD SWEAT [None]
  - DIABETES MELLITUS [None]
  - EATING DISORDER [None]
  - FATIGUE [None]
  - FEELING HOT [None]
  - HYPERHIDROSIS [None]
  - OVERWEIGHT [None]
  - POLYDIPSIA [None]
  - POOR QUALITY SLEEP [None]
  - PROSTATE CANCER [None]
  - PROSTATIC SPECIFIC ANTIGEN DECREASED [None]
  - SYNCOPE [None]
  - URINE ODOUR ABNORMAL [None]
